FAERS Safety Report 9363766 (Version 1)
Quarter: 2013Q2

REPORT INFORMATION
  Report Type: Spontaneous
  Country: US (occurrence: US)
  Receive Date: 20130624
  Receipt Date: 20130624
  Transmission Date: 20140414
  Serious: No
  Sender: FDA-Public Use
  Company Number: US-009507513-1306USA009291

PATIENT
  Sex: Female

DRUGS (4)
  1. SAPHRIS [Suspect]
     Indication: BIPOLAR I DISORDER
     Dosage: 15 MG, QPM
     Route: 060
  2. SAPHRIS [Suspect]
     Dosage: 10 MG, QPM
     Route: 060
  3. SAPHRIS [Suspect]
     Dosage: 5 MG, QPM
     Route: 060
  4. SAPHRIS [Suspect]
     Dosage: 10 MG, QPM
     Route: 060

REACTIONS (1)
  - Akathisia [Recovering/Resolving]
